FAERS Safety Report 11044173 (Version 6)
Quarter: 2018Q1

REPORT INFORMATION
  Report Type: Spontaneous
  Country: US (occurrence: US)
  Receive Date: 20150417
  Receipt Date: 20180306
  Transmission Date: 20180508
  Serious: Yes (Hospitalization, Other)
  Sender: FDA-Public Use
  Company Number: US-PFIZER INC-2015131162

PATIENT
  Age: 82 Year
  Sex: Male
  Weight: 99.34 kg

DRUGS (19)
  1. SUTENT [Suspect]
     Active Substance: SUNITINIB MALATE
     Dosage: 37.5 MG, CYCLIC (28 DAYS ON AND 14 OFF)
     Dates: start: 2010, end: 201801
  2. VITAMIN D3 [Concomitant]
     Active Substance: CHOLECALCIFEROL
     Dosage: 100 IU, UNK
  3. FISH OIL [Concomitant]
     Active Substance: FISH OIL
     Dosage: 12 MG, UNK
  4. WELCHOL [Concomitant]
     Active Substance: COLESEVELAM HYDROCHLORIDE
     Dosage: 625 MG, UNK
  5. OMEPRAZOLE. [Concomitant]
     Active Substance: OMEPRAZOLE
     Dosage: 20 MG, UNK
  6. LEVOTHYROXINE. [Concomitant]
     Active Substance: LEVOTHYROXINE
     Dosage: 125 UG, UNK
  7. SUTENT [Suspect]
     Active Substance: SUNITINIB MALATE
     Dosage: UNK, ONCE A DAY (37.4)
     Dates: start: 2013
  8. ALLOPURINOL. [Concomitant]
     Active Substance: ALLOPURINOL
     Dosage: 100 MG, UNK
  9. RIVASTIGMINE. [Concomitant]
     Active Substance: RIVASTIGMINE
     Dosage: 3 MG, TWICE A DAY
  10. SUTENT [Suspect]
     Active Substance: SUNITINIB MALATE
     Indication: RENAL CELL CARCINOMA
     Dosage: 37.4 MG, CYCLIC (IN THE EVENING ON 28 DAYS OFF 14 DAYS)
     Route: 048
     Dates: start: 2009
  11. VITAMIN D2 [Concomitant]
     Active Substance: ERGOCALCIFEROL
     Dosage: 1.25 MG, UNK
  12. FUROSEMIDE. [Concomitant]
     Active Substance: FUROSEMIDE
     Dosage: 40 MG, AS NEEDED
  13. METFORMIN [Concomitant]
     Active Substance: METFORMIN HYDROCHLORIDE
     Dosage: 500 MG, TWICE A DAY
  14. CARVEDILOL. [Concomitant]
     Active Substance: CARVEDILOL
     Dosage: 3.125 MG, UNK
  15. ZINC. [Concomitant]
     Active Substance: ZINC
     Dosage: 50 MG, UNK
  16. XARELTO [Concomitant]
     Active Substance: RIVAROXABAN
     Dosage: 20 MG, UNK
  17. VITAMIN B12 [Concomitant]
     Active Substance: CYANOCOBALAMIN
     Dosage: 1000 MG, UNK
  18. LISINOPRIL. [Concomitant]
     Active Substance: LISINOPRIL
     Dosage: 20 MG, UNK
  19. MEMANTINE. [Concomitant]
     Active Substance: MEMANTINE
     Dosage: 10 MG, TWICE A DAY

REACTIONS (16)
  - Dizziness [Not Recovered/Not Resolved]
  - Malaise [Unknown]
  - Abdominal discomfort [Unknown]
  - White blood cell count decreased [Recovered/Resolved]
  - Thinking abnormal [Unknown]
  - Dementia [Unknown]
  - Cataract [Unknown]
  - Hypertension [Unknown]
  - Vascular dementia [Not Recovered/Not Resolved]
  - Hypoacusis [Unknown]
  - Dysgeusia [Not Recovered/Not Resolved]
  - Decreased appetite [Not Recovered/Not Resolved]
  - Confusional state [Unknown]
  - Weight decreased [Recovered/Resolved]
  - Neoplasm progression [Recovered/Resolved with Sequelae]
  - Memory impairment [Unknown]

NARRATIVE: CASE EVENT DATE: 2014
